FAERS Safety Report 26062611 (Version 1)
Quarter: 2025Q4

REPORT INFORMATION
  Report Type: Spontaneous
  Country: US (occurrence: None)
  Receive Date: 20251118
  Receipt Date: 20251118
  Transmission Date: 20260117
  Serious: Yes (Other)
  Sender: FDA-CTU
  Company Number: None

PATIENT
  Age: 75 Year
  Sex: Male

DRUGS (2)
  1. LENALIDOMIDE [Suspect]
     Active Substance: LENALIDOMIDE
     Dosage: FREQUENCY : DAILY;?
  2. LASIX [Suspect]
     Active Substance: FUROSEMIDE

REACTIONS (7)
  - Confusional state [None]
  - Balance disorder [None]
  - Dehydration [None]
  - Cardiac failure congestive [None]
  - Joint swelling [None]
  - Joint swelling [None]
  - Fall [None]
